FAERS Safety Report 5975027-9 (Version None)
Quarter: 2008Q4

REPORT INFORMATION
  Report Type: 
  Country: None (occurrence: None)
  Receive Date: 20081201
  Receipt Date: 20081118
  Transmission Date: 20090506
  Serious: Yes (Other)
  Sender: FDA-Public Use
  Company Number: 2008-04394

PATIENT
  Age: 67 Year
  Sex: Female

DRUGS (2)
  1. VELCADE [Suspect]
     Indication: MULTIPLE MYELOMA
     Dosage: 1.3 MG
  2. DEXAMETHASONE [Concomitant]

REACTIONS (4)
  - ASTHENIA [None]
  - LETHARGY [None]
  - LOWER RESPIRATORY TRACT INFECTION [None]
  - NEUROPATHY PERIPHERAL [None]
